FAERS Safety Report 9098509 (Version 1)
Quarter: 2013Q1

REPORT INFORMATION
  Report Type: Spontaneous
  Country: US (occurrence: US)
  Receive Date: 20130213
  Receipt Date: 20130213
  Transmission Date: 20140127
  Serious: Yes (Other)
  Sender: FDA-Public Use
  Company Number: US-BAYER-2013-017141

PATIENT
  Sex: 0

DRUGS (2)
  1. BAYER ASPIRIN REGIMEN ADULT LOW STRENGTH [Suspect]
     Indication: ISCHAEMIC HEART DISEASE PROPHYLAXIS
     Dosage: UNK
     Route: 048
  2. BAYER EXTRA STRENGTH BACK + BODY PAIN [Suspect]
     Indication: ARTHRALGIA
     Route: 048

REACTIONS (1)
  - Coeliac disease [None]
